FAERS Safety Report 16595731 (Version 6)
Quarter: 2023Q1

REPORT INFORMATION
  Report Type: Spontaneous
  Country: FR (occurrence: FR)
  Receive Date: 20190719
  Receipt Date: 20230307
  Transmission Date: 20230418
  Serious: Yes (Hospitalization)
  Sender: FDA-Public Use
  Company Number: None

PATIENT
  Age: 72 Year
  Sex: Female
  Weight: 84 kg

DRUGS (13)
  1. ALLOPURINOL [Suspect]
     Active Substance: ALLOPURINOL
     Indication: Prophylaxis
     Dosage: 300 MILLIGRAM, ONCE A DAY
     Route: 048
     Dates: start: 20190123, end: 20190203
  2. AMOXICILLIN [Suspect]
     Active Substance: AMOXICILLIN
     Indication: Pyrexia
     Dosage: UNK
     Route: 048
     Dates: start: 20190203, end: 20190210
  3. CLARITHROMYCIN [Suspect]
     Active Substance: CLARITHROMYCIN
     Indication: Pyrexia
     Dosage: UNK
     Route: 048
     Dates: start: 20190203
  4. BACTRIM [Suspect]
     Active Substance: SULFAMETHOXAZOLE\TRIMETHOPRIM
     Indication: Prophylaxis
     Dosage: 3 DOSAGE FORM, EVERY WEEK
     Route: 048
     Dates: start: 20190123, end: 20190304
  5. LEUCOVORIN CALCIUM [Suspect]
     Active Substance: LEUCOVORIN CALCIUM
     Indication: Prophylaxis
     Dosage: 1 DOSAGE FORM, 1 SECOND
     Route: 048
  6. ROXITHROMYCIN [Suspect]
     Active Substance: ROXITHROMYCIN
     Indication: Febrile neutropenia
     Dosage: UNK
     Route: 048
     Dates: start: 20190213, end: 20190219
  7. TRUXIMA [Suspect]
     Active Substance: RITUXIMAB-ABBS
     Indication: Nodal marginal zone B-cell lymphoma stage IV
     Dosage: 700 MILLIGRAM, UNK
     Route: 042
     Dates: start: 20190122, end: 20190213
  8. KARDEGIC [Concomitant]
     Active Substance: ASPIRIN DL-LYSINE
     Indication: Product used for unknown indication
     Dosage: 1 DOSAGE FORM, ONCE A DAY
     Route: 048
     Dates: start: 20190301, end: 20190301
  9. TELMISARTAN [Concomitant]
     Active Substance: TELMISARTAN
     Indication: Product used for unknown indication
     Dosage: 80 MILLIGRAM, ONCE A DAY
     Route: 048
     Dates: start: 20190301, end: 20190301
  10. CHOLECALCIFEROL [Concomitant]
     Active Substance: CHOLECALCIFEROL
     Indication: Vitamin supplementation
     Dosage: 1 DOSAGE FORM, 3 MONTH
     Route: 048
     Dates: start: 20190301, end: 20190301
  11. Solupred [Concomitant]
     Indication: Nodal marginal zone B-cell lymphoma stage IV
     Dosage: 450 MILLIGRAM (45MGX2 FROM J1 TO J5)
     Route: 048
     Dates: start: 20190122, end: 20190122
  12. ELDISINE [Concomitant]
     Active Substance: VINDESINE SULFATE
     Indication: Nodal marginal zone B-cell lymphoma stage IV
     Dosage: 5.7 MILLIGRAM, CYCLICAL (, 5 MG AT 5.7 MG CYCLIC)
     Route: 041
     Dates: start: 20190122, end: 20190122
  13. CYCLOPHOSPHAMIDE [Concomitant]
     Active Substance: CYCLOPHOSPHAMIDE
     Indication: Nodal marginal zone B-cell lymphoma stage IV
     Dosage: 1420 MILLIGRAM, CYCLICAL (1000 MG AT 1420 MG CYCLIC VIA INTRAVENOUS DRIP)
     Route: 041
     Dates: start: 20190122, end: 20190122

REACTIONS (6)
  - Oedema peripheral [Recovered/Resolved]
  - Rash maculo-papular [Recovered/Resolved]
  - Eosinophilia [Recovered/Resolved]
  - Off label use [Unknown]
  - Intentional product use issue [Unknown]
  - Underdose [Unknown]

NARRATIVE: CASE EVENT DATE: 20190217
